FAERS Safety Report 9540097 (Version 3)
Quarter: 2013Q4

REPORT INFORMATION
  Report Type: Spontaneous
  Country: NL (occurrence: NL)
  Receive Date: 20130920
  Receipt Date: 20131004
  Transmission Date: 20140711
  Serious: Yes (Hospitalization)
  Sender: FDA-Public Use
  Company Number: NL-JNJFOC-20130910881

PATIENT
  Age: 56 Year
  Sex: Female
  Weight: 83.2 kg

DRUGS (9)
  1. STELARA [Suspect]
     Indication: PSORIASIS
     Route: 058
     Dates: start: 201301, end: 20130814
  2. STELARA [Suspect]
     Indication: PSORIASIS
     Route: 058
     Dates: start: 201201, end: 201301
  3. LYRICA [Concomitant]
     Indication: DIABETIC NEUROPATHY
     Route: 048
     Dates: start: 20130905
  4. PARACETAMOL/CODEINE [Concomitant]
     Indication: DIABETIC NEUROPATHY
     Dosage: MAXIMUM 2 PER DAY
     Route: 048
  5. TOLBUTAMIDE [Concomitant]
     Indication: DIABETES MELLITUS
     Dosage: YEARS AGO
     Route: 048
  6. PANTOPRAZOLE [Concomitant]
     Indication: GASTRIC DISORDER
     Route: 048
  7. DOVOBET [Concomitant]
     Indication: PSORIASIS
     Dosage: IF NECESSARY
     Route: 061
  8. SPIRONOLACTONE [Concomitant]
     Indication: PRODUCT USED FOR UNKNOWN INDICATION
     Route: 048
     Dates: start: 20130827
  9. TRANDOLAPRIL [Concomitant]
     Indication: PRODUCT USED FOR UNKNOWN INDICATION
     Route: 048
     Dates: start: 20130827

REACTIONS (2)
  - Gastroenteritis [Recovered/Resolved]
  - Renal impairment [Unknown]
